FAERS Safety Report 4496078-X (Version None)
Quarter: 2004Q4

REPORT INFORMATION
  Report Type: 
  Country: None (occurrence: None)
  Receive Date: 20041108
  Receipt Date: 20041029
  Transmission Date: 20050328
  Serious: Yes (Hospitalization)
  Sender: FDA-Public Use
  Company Number: SE-MERCK-0411SWE00002

PATIENT
  Age: 78 Year
  Sex: Female

DRUGS (3)
  1. ZOCOR [Suspect]
     Indication: HYPERLIPIDAEMIA
     Route: 048
     Dates: start: 20030801, end: 20040810
  2. ZOCOR [Suspect]
     Route: 048
     Dates: start: 20030101, end: 20030801
  3. AMLODIPINE BESYLATE [Concomitant]
     Route: 065

REACTIONS (1)
  - LEUKAEMIA [None]
